FAERS Safety Report 20077963 (Version 1)
Quarter: 2021Q4

REPORT INFORMATION
  Report Type: Spontaneous
  Country: NL (occurrence: NL)
  Receive Date: 20211116
  Receipt Date: 20211116
  Transmission Date: 20220304
  Serious: Yes (Other)
  Sender: FDA-Public Use
  Company Number: NL-SUN PHARMACEUTICAL INDUSTRIES LTD-2021R1-317414

PATIENT
  Age: 39 Year
  Sex: Female

DRUGS (5)
  1. METHOTREXATE [Suspect]
     Active Substance: METHOTREXATE
     Indication: Choriocarcinoma
     Dosage: UNK
     Route: 065
  2. VINCRISTINE [Suspect]
     Active Substance: VINCRISTINE
     Indication: Choriocarcinoma
     Dosage: UNK
     Route: 065
  3. ACTINOMYCIN D [Suspect]
     Active Substance: DACTINOMYCIN
     Indication: Choriocarcinoma
     Dosage: UNK
     Route: 065
  4. ETOPOSIDE [Suspect]
     Active Substance: ETOPOSIDE
     Indication: Choriocarcinoma
     Dosage: UNK
     Route: 065
  5. CYCLOPHOSPHAMIDE [Suspect]
     Active Substance: CYCLOPHOSPHAMIDE
     Indication: Choriocarcinoma
     Dosage: UNK
     Route: 065

REACTIONS (8)
  - Multiple organ dysfunction syndrome [Recovering/Resolving]
  - Hepatic failure [Recovering/Resolving]
  - Hepatic lesion [Recovering/Resolving]
  - Haemorrhage [Recovering/Resolving]
  - Haemothorax [Recovering/Resolving]
  - Sepsis [Recovering/Resolving]
  - Endometritis [Recovering/Resolving]
  - Haemolysis [Recovering/Resolving]
